FAERS Safety Report 7748373-6 (Version None)
Quarter: 2011Q3

REPORT INFORMATION
  Report Type: 
  Country: None (occurrence: None)
  Receive Date: 20110913
  Receipt Date: 20110829
  Transmission Date: 20111222
  Serious: Yes (Life-Threatening, Hospitalization)
  Sender: FDA-Public Use
  Company Number: ES-GENENTECH-323927

PATIENT
  Age: 63 Year
  Sex: Female

DRUGS (4)
  1. XOLAIR [Suspect]
     Indication: URTICARIA CHRONIC
     Dosage: 300 MG, 1/MONTH
     Route: 058
     Dates: start: 20110406, end: 20110606
  2. CARVEDILOL [Concomitant]
  3. VERPAMIL HCL [Concomitant]
     Indication: PRODUCT USED FOR UNKNOWN INDICATION
  4. LEVOTHYROXINE SODIUM [Concomitant]
     Indication: PRODUCT USED FOR UNKNOWN INDICATION

REACTIONS (1)
  - ACUTE MYOCARDIAL INFARCTION [None]
